FAERS Safety Report 7038506-1 (Version None)
Quarter: 2010Q4

REPORT INFORMATION
  Report Type: 
  Country: None (occurrence: None)
  Receive Date: 20101011
  Receipt Date: 20100517
  Transmission Date: 20110411
  Serious: No
  Sender: FDA-Public Use
  Company Number: US-PFIZER INC-2010061526

PATIENT
  Sex: Female

DRUGS (2)
  1. NEURONTIN [Suspect]
     Indication: HERPES ZOSTER
  2. LYRICA [Suspect]
     Indication: HERPES ZOSTER

REACTIONS (1)
  - EYE PAIN [None]
